FAERS Safety Report 11009584 (Version 1)
Quarter: 2015Q2

REPORT INFORMATION
  Report Type: Other
  Country: US (occurrence: US)
  Receive Date: 20150410
  Receipt Date: 20150410
  Transmission Date: 20150821
  Serious: No
  Sender: FDA-Public Use
  Company Number: US-ENDO PHARMACEUTICALS INC.-DIAZ20140025

PATIENT
  Sex: Male

DRUGS (1)
  1. DIAZEPAM 2MG [Suspect]
     Active Substance: DIAZEPAM
     Indication: MENIERE^S DISEASE
     Route: 048
     Dates: start: 2014

REACTIONS (3)
  - Malaise [Recovered/Resolved]
  - Feeling abnormal [Recovered/Resolved]
  - Nervous system disorder [Recovered/Resolved]

NARRATIVE: CASE EVENT DATE: 201412
